FAERS Safety Report 5391798-7 (Version None)
Quarter: 2007Q3

REPORT INFORMATION
  Report Type: 
  Country: None (occurrence: None)
  Receive Date: 20070717
  Receipt Date: 20070704
  Transmission Date: 20080115
  Serious: Yes (Death)
  Sender: FDA-Public Use
  Company Number: 2007BI014610

PATIENT
  Age: 70 Year
  Sex: Female

DRUGS (3)
  1. ZEVALIN [Suspect]
     Indication: MANTLE CELL LYMPHOMA RECURRENT
     Dosage: 0.4 MCI/KG; 1X; IV
     Route: 042
     Dates: start: 20051125, end: 20051125
  2. RITUXAN [Concomitant]
  3. RITUXAN [Concomitant]

REACTIONS (1)
  - CARDIAC FAILURE [None]
